FAERS Safety Report 24000904 (Version 1)
Quarter: 2024Q2

REPORT INFORMATION
  Report Type: Spontaneous
  Country: AU (occurrence: AU)
  Receive Date: 20240621
  Receipt Date: 20240621
  Transmission Date: 20240715
  Serious: Yes (Other)
  Sender: FDA-Public Use
  Company Number: AU-BAXTER-2023BAX028107

PATIENT
  Age: 83 Year
  Sex: Female
  Weight: 85 kg

DRUGS (24)
  1. DOXORUBICIN [Suspect]
     Active Substance: DOXORUBICIN
     Indication: Diffuse large B-cell lymphoma stage I
     Dosage: 25 MILLIGRAM/SQ. METER, 1Q3W, SOLUTION FOR INFUSION, C1D1 - C6D1
     Route: 042
     Dates: start: 20220824, end: 20221207
  2. CYCLOPHOSPHAMIDE [Suspect]
     Active Substance: CYCLOPHOSPHAMIDE
     Indication: Diffuse large B-cell lymphoma stage I
     Dosage: 400 MILLIGRAM/SQ. METER, 1Q3W, POWDER FOR SOLUTION FOR INJECTION, C1D1 - C6D1
     Route: 042
     Dates: start: 20220824, end: 20221207
  3. RITUXIMAB [Suspect]
     Active Substance: RITUXIMAB
     Indication: Diffuse large B-cell lymphoma stage I
     Dosage: 375 MILLIGRAM/SQ. METER, 1Q3W, C1D1 - C6D1
     Route: 042
     Dates: start: 20220824, end: 20221207
  4. RITUXIMAB [Suspect]
     Active Substance: RITUXIMAB
     Dosage: 375 MG/M2, C6D1
     Route: 042
     Dates: start: 20221207
  5. VINCRISTINE [Suspect]
     Active Substance: VINCRISTINE
     Indication: Diffuse large B-cell lymphoma stage I
     Dosage: 1 MILLIGRAM/SQ. METER, 1Q3W, C1D1 - C6D1
     Route: 042
     Dates: start: 20220824, end: 20221207
  6. PREDNISOLONE [Suspect]
     Active Substance: PREDNISOLONE
     Indication: Diffuse large B-cell lymphoma stage I
     Dosage: 100 MILLIGRAM, QD
     Route: 048
     Dates: start: 20220824, end: 20220828
  7. PREDNISOLONE [Suspect]
     Active Substance: PREDNISOLONE
     Dosage: 100 MILLIGRAM, QD
     Route: 048
     Dates: start: 20220914, end: 20220918
  8. PREDNISOLONE [Suspect]
     Active Substance: PREDNISOLONE
     Dosage: 75 MILLIGRAM, QD
     Route: 048
     Dates: start: 20221005, end: 20221009
  9. PREDNISOLONE [Suspect]
     Active Substance: PREDNISOLONE
     Dosage: 75 MILLIGRAM, QD
     Route: 048
     Dates: start: 20221026, end: 20221030
  10. PREDNISOLONE [Suspect]
     Active Substance: PREDNISOLONE
     Dosage: 75 MILLIGRAM, QD
     Route: 048
     Dates: start: 20221116, end: 20221120
  11. PREDNISOLONE [Suspect]
     Active Substance: PREDNISOLONE
     Dosage: 75 MILLIGRAM, QD, C6D5
     Route: 048
     Dates: start: 20221207, end: 20221211
  12. EPCORITAMAB [Suspect]
     Active Substance: EPCORITAMAB
     Indication: Diffuse large B-cell lymphoma stage I
     Dosage: PRIMING DOSE: 0.16 MILLIGRAM, SINGLE, C1D1
     Route: 058
     Dates: start: 20220824, end: 20220824
  13. EPCORITAMAB [Suspect]
     Active Substance: EPCORITAMAB
     Dosage: INTERMEDIATE DOSE: 0.8, MILLIGRAM, SINGLE, C1D8
     Route: 058
     Dates: start: 20220831, end: 20220831
  14. EPCORITAMAB [Suspect]
     Active Substance: EPCORITAMAB
     Dosage: FULL DOSE: 48 MILLIGRAM, WEEKLY, C1D15 - C8D1
     Route: 058
     Dates: start: 20220907, end: 20220928
  15. EPCORITAMAB [Suspect]
     Active Substance: EPCORITAMAB
     Dosage: 48 MILLIGRAM, 1Q3W, C3D1 - C6D1
     Route: 058
     Dates: start: 20221005, end: 20221207
  16. EPCORITAMAB [Suspect]
     Active Substance: EPCORITAMAB
     Dosage: 48 MILLIGRAM, 1Q4W, C7D1 - C8D1
     Route: 058
     Dates: start: 20230111, end: 20230209
  17. ALLOPURINOL [Concomitant]
     Active Substance: ALLOPURINOL
     Dosage: UNK
     Route: 065
     Dates: start: 20220821
  18. LORATADINE [Concomitant]
     Active Substance: LORATADINE
     Dosage: 10 MG
     Route: 048
     Dates: start: 20230209, end: 20230209
  19. ACETAMINOPHEN [Concomitant]
     Active Substance: ACETAMINOPHEN
     Dosage: 1 G
     Route: 048
     Dates: start: 20230209, end: 20230209
  20. FISH OIL [Concomitant]
     Active Substance: FISH OIL
     Dosage: UNK, (START DATE: 2000), ONGOING
     Route: 065
  21. GLUCOSAMINE [Concomitant]
     Active Substance: GLUCOSAMINE
     Dosage: UNK, (START DATE: 2000), ONGOING
     Route: 065
  22. IRBESARTAN [Concomitant]
     Active Substance: IRBESARTAN
     Dosage: UNK, (START DATE: 2014), ONGOING
     Route: 065
  23. AMOXICILLIN\CLAVULANATE POTASSIUM [Concomitant]
     Active Substance: AMOXICILLIN\CLAVULANATE POTASSIUM
     Dosage: UNK (FROM MAY-2023 TO JUN-2023)
     Route: 065
  24. TOZINAMERAN [Concomitant]
     Active Substance: TOZINAMERAN
     Dosage: UNK, START DATE: AUG-2023 AND END DATE: AUG-2023
     Route: 065

REACTIONS (2)
  - Lung adenocarcinoma recurrent [Recovered/Resolved]
  - Second primary malignancy [Recovered/Resolved]

NARRATIVE: CASE EVENT DATE: 20230719
